FAERS Safety Report 9370749 (Version 1)
Quarter: 2013Q2

REPORT INFORMATION
  Report Type: Report from Study
  Country: US (occurrence: US)
  Receive Date: 20130626
  Receipt Date: 20130626
  Transmission Date: 20140414
  Serious: Yes (Other)
  Sender: FDA-Public Use
  Company Number: US-PURDUE-USA-2013-0103759

PATIENT
  Sex: Female

DRUGS (2)
  1. DILAUDID INJECTION [Suspect]
     Indication: PAIN
     Dosage: UNK
     Route: 042
     Dates: start: 2013
  2. COPAXONE [Suspect]
     Indication: MULTIPLE SCLEROSIS
     Dosage: UNK
     Route: 030
     Dates: start: 20120714

REACTIONS (3)
  - Chest discomfort [Unknown]
  - Respiratory depression [Unknown]
  - Drug hypersensitivity [Unknown]
